FAERS Safety Report 21915443 (Version 1)
Quarter: 2023Q1

REPORT INFORMATION
  Report Type: Report from Study
  Country: ES (occurrence: ES)
  Receive Date: 20230126
  Receipt Date: 20230126
  Transmission Date: 20230418
  Serious: Yes (Other)
  Sender: FDA-Public Use
  Company Number: ES-MYLANLABS-2023M1007415

PATIENT
  Age: 75 Year
  Sex: Male

DRUGS (5)
  1. ASPIRIN [Suspect]
     Active Substance: ASPIRIN
     Indication: Product used for unknown indication
     Dosage: 150 MILLIGRAM, QD, 150 MG/24HR
     Route: 065
     Dates: start: 1993
  2. ALLOPURINOL [Suspect]
     Active Substance: ALLOPURINOL
     Indication: Hyperuricaemia
     Dosage: UNK
     Route: 065
  3. SIMVASTATIN [Suspect]
     Active Substance: SIMVASTATIN
     Indication: Product used for unknown indication
     Dosage: 20 MILLIGRAM, QD, 20 MG/24HR
     Route: 065
     Dates: start: 1995
  4. CARVEDILOL [Suspect]
     Active Substance: CARVEDILOL
     Indication: Product used for unknown indication
     Dosage: 6.25 MILLIGRAM, BID
     Route: 065
  5. RAMIPRIL [Concomitant]
     Active Substance: RAMIPRIL
     Indication: Hypertension
     Dosage: 5 MILLIGRAM
     Route: 065

REACTIONS (9)
  - Aortic arteriosclerosis [Unknown]
  - Myocardial hypoperfusion [Unknown]
  - Chest pain [Unknown]
  - Dyspnoea exertional [Unknown]
  - Intermittent claudication [Unknown]
  - Myalgia [Unknown]
  - Peripheral vascular disorder [Unknown]
  - Left ventricular dilatation [Unknown]
  - Aortic aneurysm [Unknown]
